FAERS Safety Report 24837917 (Version 2)
Quarter: 2025Q1

REPORT INFORMATION
  Report Type: Spontaneous
  Country: US (occurrence: US)
  Receive Date: 20250113
  Receipt Date: 20250123
  Transmission Date: 20250409
  Serious: Yes (Death, Hospitalization)
  Sender: TEVA
  Company Number: US-TEVA-VS-3284739

PATIENT
  Age: 61 Year
  Sex: Female

DRUGS (3)
  1. CARBOPLATIN [Suspect]
     Active Substance: CARBOPLATIN
     Indication: Fallopian tube cancer stage III
     Route: 065
     Dates: start: 202405
  2. DOXORUBICIN [Suspect]
     Active Substance: DOXORUBICIN
     Indication: Fallopian tube cancer stage III
     Route: 065
     Dates: start: 202405
  3. MIRVETUXIMAB SORAVTANSINE-GYNX [Suspect]
     Active Substance: MIRVETUXIMAB SORAVTANSINE-GYNX
     Indication: Fallopian tube cancer stage III
     Route: 065

REACTIONS (2)
  - Drug ineffective [Fatal]
  - Keratitis [Recovered/Resolved]
